FAERS Safety Report 9231282 (Version 3)
Quarter: 2014Q3

REPORT INFORMATION
  Report Type: Spontaneous
  Country: US (occurrence: US)
  Receive Date: 20130415
  Receipt Date: 20140730
  Transmission Date: 20150326
  Serious: Yes (Hospitalization)
  Sender: FDA-Public Use
  Company Number: US-BAYER-2013-045732

PATIENT
  Age: 24 Year
  Sex: Female
  Weight: 113.38 kg

DRUGS (5)
  1. FLONASE [Concomitant]
     Active Substance: FLUTICASONE PROPIONATE
  2. EXCEDRIN [Concomitant]
     Active Substance: ACETAMINOPHEN\ASPIRIN\CAFFEINE
  3. MIRENA [Suspect]
     Active Substance: LEVONORGESTREL
     Indication: CONTRACEPTION
     Dosage: 20 MCG/24HR, CONT
     Route: 015
     Dates: start: 20091103, end: 20110513
  4. ALBUTEROL. [Concomitant]
     Active Substance: ALBUTEROL
     Indication: ASTHMA
     Dosage: UNK
     Dates: start: 2009, end: 2011
  5. IBUPROFEN. [Concomitant]
     Active Substance: IBUPROFEN

REACTIONS (10)
  - Anxiety [None]
  - Device difficult to use [None]
  - Device issue [None]
  - Uterine perforation [None]
  - Pain [None]
  - Emotional distress [None]
  - Alopecia [None]
  - Abdominal pain [None]
  - Depression [None]
  - Injury [None]

NARRATIVE: CASE EVENT DATE: 201001
